FAERS Safety Report 11616898 (Version 2)
Quarter: 2015Q4

REPORT INFORMATION
  Report Type: Spontaneous
  Country: JP (occurrence: JP)
  Receive Date: 20151009
  Receipt Date: 20151027
  Transmission Date: 20160304
  Serious: Yes (Other)
  Sender: FDA-Public Use
  Company Number: JP-PFIZER INC-2015334228

PATIENT
  Age: 44 Year
  Sex: Male
  Weight: 40 kg

DRUGS (2)
  1. VFEND [Suspect]
     Active Substance: VORICONAZOLE
     Dosage: 200 MG, 2X/DAY
     Route: 048
     Dates: start: 20151002, end: 20151006
  2. VFEND [Suspect]
     Active Substance: VORICONAZOLE
     Dosage: 400 MG, 2X/DAY
     Route: 048
     Dates: start: 20151001, end: 20151001

REACTIONS (8)
  - Depressed level of consciousness [Recovered/Resolved]
  - Photophobia [Recovering/Resolving]
  - Hyperhidrosis [Recovered/Resolved]
  - Chromaturia [Recovering/Resolving]
  - Tremor [Recovered/Resolved]
  - Visual impairment [Recovered/Resolved]
  - Malaise [Recovered/Resolved]
  - Dizziness [Recovering/Resolving]

NARRATIVE: CASE EVENT DATE: 20151002
